FAERS Safety Report 10090158 (Version 1)
Quarter: 2014Q2

REPORT INFORMATION
  Report Type: Spontaneous
  Country: US (occurrence: US)
  Receive Date: 20140421
  Receipt Date: 20140421
  Transmission Date: 20141212
  Serious: No
  Sender: FDA-Public Use
  Company Number: US-009507513-1404USA004690

PATIENT
  Sex: Female

DRUGS (1)
  1. NEXPLANON [Suspect]
     Indication: CONTRACEPTION
     Dosage: 1 ROD, INSERTED EVERY THREE YEARS
     Route: 059
     Dates: start: 20130814, end: 20140404

REACTIONS (2)
  - Limb discomfort [Recovering/Resolving]
  - Device breakage [Recovering/Resolving]
